FAERS Safety Report 9221470 (Version 4)
Quarter: 2013Q2

REPORT INFORMATION
  Report Type: Other
  Country: CN (occurrence: CN)
  Receive Date: 20130410
  Receipt Date: 20130626
  Transmission Date: 20140414
  Serious: Yes (Death, Other)
  Sender: FDA-Public Use
  Company Number: CN-GE HEALTHCARE MEDICAL DIAGNOSTICS-OSCN-NO-1304S-0028

PATIENT
  Age: 12 Year
  Sex: Male
  Weight: 47.5 kg

DRUGS (2)
  1. OMNISCAN [Suspect]
     Indication: PRODUCT USED FOR UNKNOWN INDICATION
     Route: 042
     Dates: start: 20130314, end: 20130314
  2. OMNISCAN [Suspect]
     Indication: DIAGNOSTIC PROCEDURE

REACTIONS (5)
  - Electrolyte imbalance [Not Recovered/Not Resolved]
  - Tumour haemorrhage [Fatal]
  - Brain oedema [Fatal]
  - Brain herniation [Fatal]
  - Drug reaction with eosinophilia and systemic symptoms [Recovered/Resolved]
